FAERS Safety Report 15974257 (Version 2)
Quarter: 2019Q1

REPORT INFORMATION
  Report Type: Report from Study
  Country: US (occurrence: US)
  Receive Date: 20190218
  Receipt Date: 20190312
  Transmission Date: 20190418
  Serious: Yes (Death, Hospitalization)
  Sender: FDA-Public Use
  Company Number: US-ACADIA PHARMACEUTICALS INC.-ACA-2019-011762

PATIENT
  Sex: Female

DRUGS (1)
  1. NUPLAZID [Suspect]
     Active Substance: PIMAVANSERIN TARTRATE
     Indication: PARKINSON^S DISEASE
     Dosage: 34 MG, EVERY EVENING
     Route: 048
     Dates: start: 20161007, end: 2018

REACTIONS (4)
  - Dyspnoea [Fatal]
  - Parkinson^s disease [Fatal]
  - Urinary tract infection [Fatal]
  - Leukocytosis [Fatal]
